APPROVED DRUG PRODUCT: LUPRON DEPOT
Active Ingredient: LEUPROLIDE ACETATE
Strength: 7.5MG
Dosage Form/Route: INJECTABLE;INJECTION
Application: N019732 | Product #001
Applicant: ABBVIE ENDOCRINE INC
Approved: Jan 26, 1989 | RLD: Yes | RS: Yes | Type: RX